FAERS Safety Report 9130381 (Version 1)
Quarter: 2013Q1

REPORT INFORMATION
  Report Type: Spontaneous
  Country: US (occurrence: US)
  Receive Date: 20130228
  Receipt Date: 20130228
  Transmission Date: 20140127
  Serious: No
  Sender: FDA-Public Use
  Company Number: US-PFIZER INC-2013070835

PATIENT
  Sex: Male

DRUGS (5)
  1. NARDIL [Suspect]
     Indication: OBSESSIVE-COMPULSIVE DISORDER
     Dosage: 30 MG, 3X/DAY
     Dates: end: 2003
  2. NARDIL [Suspect]
     Indication: DEPRESSION
  3. PHENELZINE SULFATE [Suspect]
     Indication: OBSESSIVE-COMPULSIVE DISORDER
     Dosage: 30 MG, 3X/DAY
  4. PHENELZINE SULFATE [Suspect]
     Indication: DEPRESSION
  5. XANAX [Concomitant]
     Dosage: UNK

REACTIONS (2)
  - Drug ineffective [Unknown]
  - Weight increased [Unknown]
